FAERS Safety Report 4397466-2 (Version None)
Quarter: 2004Q3

REPORT INFORMATION
  Report Type: 
  Country: None (occurrence: None)
  Receive Date: 20040709
  Receipt Date: 20040628
  Transmission Date: 20050211
  Serious: Yes (Hospitalization)
  Sender: FDA-Public Use
  Company Number: JP-JNJFOC-20040608203

PATIENT
  Age: 50 Year
  Sex: Male

DRUGS (7)
  1. ITRACONAZOLE [Suspect]
     Indication: ONYCHOMYCOSIS
     Dosage: 400 MG,  IN 1 DAY, ORAL
     Route: 048
  2. NORVASC [Concomitant]
  3. BEZAFIBRATE (BEZAFIBRATE) [Concomitant]
  4. URINORM (BENZBROMARONE) [Concomitant]
  5. RITODRINE HYDROCHLORIDE (RITODRINE HYDROCHLORIDE) [Concomitant]
  6. FAMOTIDINE [Concomitant]
  7. TEPRENONE (TEPRENONE) [Concomitant]

REACTIONS (1)
  - ERYTHEMA MULTIFORME [None]
